FAERS Safety Report 26099094 (Version 1)
Quarter: 2025Q4

REPORT INFORMATION
  Report Type: Report from Study
  Country: TW (occurrence: TW)
  Receive Date: 20251128
  Receipt Date: 20251128
  Transmission Date: 20260117
  Serious: Yes (Other)
  Sender: ABBVIE
  Company Number: TW-ABBVIE-6563959

PATIENT
  Age: 77 Year
  Sex: Female
  Weight: 50 kg

DRUGS (4)
  1. HUMIRA [Suspect]
     Active Substance: ADALIMUMAB
     Indication: Rheumatoid arthritis
     Dosage: SOLUTION FOR INJECTION IN PRE-FILLED SYRINGE
     Route: 058
     Dates: start: 20110609, end: 20171228
  2. HUMIRA [Suspect]
     Active Substance: ADALIMUMAB
     Indication: Rheumatoid arthritis
     Dosage: SOLUTION FOR INJECTION
     Route: 058
     Dates: start: 20180111, end: 20251110
  3. CELECOXIB [Concomitant]
     Active Substance: CELECOXIB
     Indication: Rheumatoid arthritis
     Route: 048
     Dates: start: 20090122
  4. Utraphen [Concomitant]
     Indication: Rheumatoid arthritis
     Dosage: TRAMADOL 37.5MG+ ACETAMINOPHEN325MG
     Route: 048
     Dates: start: 20141023

REACTIONS (1)
  - Corneal perforation [Recovering/Resolving]

NARRATIVE: CASE EVENT DATE: 20251114
